FAERS Safety Report 21190366 (Version 1)
Quarter: 2022Q3

REPORT INFORMATION
  Report Type: Spontaneous
  Country: US (occurrence: US)
  Receive Date: 20220809
  Receipt Date: 20220809
  Transmission Date: 20221026
  Serious: No
  Sender: FDA-Public Use
  Company Number: US-LEO Pharma-344543

PATIENT
  Sex: Male

DRUGS (15)
  1. BENADRYL ALL TAB 25MG [Concomitant]
     Indication: Product used for unknown indication
  2. CLOBETASOL  P OIN 0.05% [Concomitant]
     Indication: Product used for unknown indication
  3. ALLEGRA ALLE TAB 180MG [Concomitant]
     Indication: Product used for unknown indication
  4. ALBUTEROL SU NEB (2.5 MG) [Concomitant]
     Indication: Product used for unknown indication
  5. TRIAMCINOLON AER 0.147MG [Concomitant]
     Indication: Product used for unknown indication
  6. ADBRY [Suspect]
     Active Substance: TRALOKINUMAB-LDRM
     Indication: Dermatitis atopic
     Dosage: 600 MG ON THE INITIAL DOSE THEN AT 300 MG EVERY TWO WEEKS STARTING ON DAY 15 SUBCUTANEOUSLY
     Route: 058
     Dates: start: 20220705
  7. ADBRY [Suspect]
     Active Substance: TRALOKINUMAB-LDRM
     Indication: Dermatitis atopic
     Dosage: 600 MG ON THE INITIAL DOSE THEN AT 300 MG EVERY TWO WEEKS STARTING ON DAY 15 SUBCUTANEOUSLY
     Route: 058
     Dates: start: 20220705
  8. ADBRY [Suspect]
     Active Substance: TRALOKINUMAB-LDRM
     Indication: Dermatitis atopic
     Dosage: 600 MG ON THE INITIAL DOSE THEN AT 300 MG EVERY TWO WEEKS STARTING ON DAY 15 SUBCUTANEOUSLY
     Route: 058
     Dates: start: 20220705
  9. ADBRY [Suspect]
     Active Substance: TRALOKINUMAB-LDRM
     Indication: Dermatitis atopic
     Dosage: 600 MG ON THE INITIAL DOSE THEN AT 300 MG EVERY TWO WEEKS STARTING ON DAY 15 SUBCUTANEOUSLY
     Route: 058
     Dates: start: 20220705
  10. ADBRY [Suspect]
     Active Substance: TRALOKINUMAB-LDRM
     Indication: Dermatitis atopic
     Dosage: 600 MG ON THE INITIAL DOSE THEN AT 300 MG EVERY TWO WEEKS STARTING ON DAY 15 SUBCUTANEOUSLY
     Route: 058
     Dates: start: 20220705
  11. ADBRY [Suspect]
     Active Substance: TRALOKINUMAB-LDRM
     Indication: Dermatitis atopic
     Dosage: 600 MG ON THE INITIAL DOSE THEN AT 300 MG EVERY TWO WEEKS STARTING ON DAY 15 SUBCUTANEOUSLY
     Route: 058
     Dates: start: 20220705
  12. ADBRY [Suspect]
     Active Substance: TRALOKINUMAB-LDRM
     Indication: Dermatitis atopic
     Dosage: 600 MG ON THE INITIAL DOSE THEN AT 300 MG EVERY TWO WEEKS STARTING ON DAY 15 SUBCUTANEOUSLY
     Route: 058
     Dates: start: 20220705
  13. ADBRY [Suspect]
     Active Substance: TRALOKINUMAB-LDRM
     Indication: Dermatitis atopic
     Dosage: 600 MG ON THE INITIAL DOSE THEN AT 300 MG EVERY TWO WEEKS STARTING ON DAY 15 SUBCUTANEOUSLY
     Route: 058
     Dates: start: 20220705
  14. GUAIFENESIN- SOL 100-10MG [Concomitant]
     Indication: Product used for unknown indication
  15. BENZONATATE CAP 200MG [Concomitant]
     Indication: Product used for unknown indication

REACTIONS (1)
  - COVID-19 [Not Recovered/Not Resolved]
